FAERS Safety Report 9973070 (Version 2)
Quarter: 2014Q2

REPORT INFORMATION
  Report Type: Report from Study
  Country: DE (occurrence: DE)
  Receive Date: 20140306
  Receipt Date: 20140429
  Transmission Date: 20141212
  Serious: Yes (Hospitalization)
  Sender: FDA-Public Use
  Company Number: DE-TEVA-466321USA

PATIENT
  Age: 86 Year
  Sex: Female
  Weight: 50 kg

DRUGS (7)
  1. BENDAMUSTINE [Suspect]
     Indication: LYMPHATIC SYSTEM NEOPLASM
     Dosage: 81 MILLIGRAM DAILY; DAY 1, 8, 15 REPEAT ON DAY 29
     Route: 065
     Dates: start: 20130515, end: 20130806
  2. ONDANSETRON [Concomitant]
  3. PANTOPRAZOL [Concomitant]
  4. VITAMIN B12 [Concomitant]
     Route: 058
  5. METFORMIN [Concomitant]
  6. PREDNISOLON [Concomitant]
  7. DEXAMETHASONE [Concomitant]

REACTIONS (2)
  - Enterocolitis [Recovered/Resolved]
  - Febrile infection [Recovered/Resolved]
